FAERS Safety Report 10924229 (Version 1)
Quarter: 2015Q1

REPORT INFORMATION
  Report Type: Spontaneous
  Country: US (occurrence: None)
  Receive Date: 20150129
  Receipt Date: 20150129
  Transmission Date: 20150721
  Serious: Yes (Other)
  Sender: FDA-Public Use
  Company Number: 107015U

PATIENT
  Sex: Female

DRUGS (5)
  1. SYNTHROID (LEVOTHYROXINE SODIUM) TABLET [Concomitant]
  2. KEPPRA [Suspect]
     Active Substance: LEVETIRACETAM
     Indication: COMPLEX PARTIAL SEIZURES
     Route: 048
     Dates: start: 20131002, end: 2013
  3. LAMICTAL [Concomitant]
     Active Substance: LAMOTRIGINE
  4. LAMICTAL [Concomitant]
     Active Substance: LAMOTRIGINE
     Dates: end: 2013
  5. LAMICTAL [Concomitant]
     Active Substance: LAMOTRIGINE
     Dates: start: 201312

REACTIONS (12)
  - Photopsia [None]
  - Hallucination [None]
  - Fine motor delay [None]
  - Vision blurred [None]
  - Seizure [None]
  - Fatigue [None]
  - Irritability [None]
  - Gingival bleeding [None]
  - Tongue injury [None]
  - Asthenia [None]
  - Tooth injury [None]
  - Confusional state [None]

NARRATIVE: CASE EVENT DATE: 2013
